FAERS Safety Report 8077116-4 (Version None)
Quarter: 2012Q1

REPORT INFORMATION
  Report Type: 
  Country: None (occurrence: None)
  Receive Date: 20120127
  Receipt Date: 20120124
  Transmission Date: 20120608
  Serious: Yes (Death, Other)
  Sender: FDA-Public Use
  Company Number: PHHY2011NL100857

PATIENT
  Sex: Female
  Weight: 70 kg

DRUGS (4)
  1. CALCIUM [Concomitant]
     Indication: OSTEOPOROSIS
     Dosage: UNK UKN, UNK
  2. ZOLEDRONOC ACID [Suspect]
     Indication: OSTEOPOROSIS
     Dosage: 5 MG/100 ML
     Route: 042
     Dates: start: 20101123, end: 20111101
  3. ANTIHYPERTENSIVE DRUGS [Concomitant]
     Indication: OSTEOPOROSIS
     Dosage: UNK UKN, UNK
  4. ZOMETA [Suspect]
     Dosage: UNK UKN, UNK

REACTIONS (2)
  - LUNG CANCER METASTATIC [None]
  - HYPERCALCAEMIA [None]
